FAERS Safety Report 6941829-5 (Version None)
Quarter: 2010Q3

REPORT INFORMATION
  Report Type: 
  Country: None (occurrence: None)
  Receive Date: 20100826
  Receipt Date: 20100820
  Transmission Date: 20110219
  Serious: Yes (Hospitalization)
  Sender: FDA-Public Use
  Company Number: IT-PFIZER INC-2010105648

PATIENT
  Age: 66 Year
  Sex: Female

DRUGS (4)
  1. TORVAST [Suspect]
     Indication: HYPERCHOLESTEROLAEMIA
     Dosage: 20 MG DAILY
     Route: 048
     Dates: start: 20100803, end: 20100803
  2. PLAVIX [Suspect]
     Indication: CARDIAC PACEMAKER INSERTION
     Dosage: 75 MG DAILY
     Route: 048
     Dates: start: 20100803, end: 20100803
  3. FUROSEMIDE [Concomitant]
  4. ASPIRIN [Concomitant]
     Dosage: 100 MG
     Route: 048

REACTIONS (3)
  - RASH [None]
  - RASH GENERALISED [None]
  - THROAT IRRITATION [None]
